FAERS Safety Report 8573439-0 (Version None)
Quarter: 2012Q3

REPORT INFORMATION
  Report Type: 
  Country: None (occurrence: None)
  Receive Date: 20120806
  Receipt Date: 20120803
  Transmission Date: 20120928
  Serious: Yes (Other)
  Sender: FDA-Public Use
  Company Number: US-PFIZER INC-2012189391

PATIENT
  Age: 78 Year
  Sex: Female
  Weight: 52.154 kg

DRUGS (3)
  1. ALPRAZOLAM [Concomitant]
     Dosage: HALF AT MORNING AND ONE AT NIGHT
  2. HYDROCORTISONE 0.05% CREAM [Suspect]
     Indication: HAEMORRHOIDS
     Dosage: UNK
     Dates: start: 20120802, end: 20120803
  3. HYDROCORTISONE 0.05% CREAM [Suspect]
     Dosage: UNK
     Dates: end: 20120802

REACTIONS (2)
  - HAEMORRHAGE [None]
  - BURNING SENSATION [None]
